FAERS Safety Report 11259534 (Version 1)
Quarter: 2015Q3

REPORT INFORMATION
  Report Type: Spontaneous
  Country: None (occurrence: None)
  Receive Date: 20150709
  Receipt Date: 20150709
  Transmission Date: 20151125
  Serious: Yes (Other)
  Sender: FDA-Public Use
  Company Number: None

PATIENT
  Age: 7 Year
  Sex: Female
  Weight: 27.22 kg

DRUGS (2)
  1. SINGULAIR [Suspect]
     Active Substance: MONTELUKAST SODIUM
     Indication: HYPERSENSITIVITY
     Dosage: 1/PER DAY, ONCE DAILY, TAKEN BY MOUTH
     Route: 048
  2. SINGULAIR [Suspect]
     Active Substance: MONTELUKAST SODIUM
     Indication: ASTHMA
     Dosage: 1/PER DAY, ONCE DAILY, TAKEN BY MOUTH
     Route: 048

REACTIONS (4)
  - Hallucination, auditory [None]
  - Depression [None]
  - Disturbance in attention [None]
  - Mood swings [None]

NARRATIVE: CASE EVENT DATE: 20140901
